FAERS Safety Report 9361781 (Version 1)
Quarter: 2013Q2

REPORT INFORMATION
  Report Type: Spontaneous
  Country: GR (occurrence: GR)
  Receive Date: 20130621
  Receipt Date: 20130621
  Transmission Date: 20140414
  Serious: Yes (Death, Hospitalization, Other)
  Sender: FDA-Public Use
  Company Number: PHHY2013GR062838

PATIENT
  Age: 48 Year
  Sex: Male

DRUGS (11)
  1. NEORAL [Suspect]
     Indication: RENAL TRANSPLANT
     Dosage: 3 MG/KG, UNK
  2. TACROLIMUS [Suspect]
     Indication: RENAL TRANSPLANT
     Dosage: 0.1 MG/KG, UNK
  3. MYCOPHENOLATE MOFETIL [Concomitant]
     Indication: RENAL TRANSPLANT
     Dosage: 1 G, BID
  4. MYCOPHENOLATE MOFETIL [Concomitant]
     Dosage: 1.5 G, DAILY
  5. METHYLPREDNISOLONE [Concomitant]
     Indication: RENAL TRANSPLANT
     Dosage: 20 MG, DAILY
  6. METHYLPREDNISOLONE [Concomitant]
     Dosage: 16 MG, DAILY
  7. BASILIXIMAB [Concomitant]
     Indication: RENAL TRANSPLANT
  8. ENGERIX [Concomitant]
  9. GAMMAGLOBULIN [Concomitant]
  10. PLASMA, FRESH FROZEN [Concomitant]
  11. PREDNISOLONE [Concomitant]
     Dosage: 15 MG, EVERY OTHER DAY

REACTIONS (11)
  - Hepatitis fulminant [Fatal]
  - Hepatorenal syndrome [Fatal]
  - Encephalopathy [Fatal]
  - Jaundice [Fatal]
  - Ascites [Fatal]
  - General physical health deterioration [Fatal]
  - Acute hepatitis B [Fatal]
  - Chronic allograft nephropathy [Unknown]
  - Renal tubular necrosis [Unknown]
  - Oedematous kidney [Unknown]
  - Immunosuppressant drug level increased [Unknown]
